FAERS Safety Report 17301823 (Version 2)
Quarter: 2020Q1

REPORT INFORMATION
  Report Type: Other
  Country: CA (occurrence: CA)
  Receive Date: 20200122
  Receipt Date: 20200218
  Transmission Date: 20200409
  Serious: Yes (Other)
  Sender: FDA-Public Use
  Company Number: CA-BECTON DICKINSON-2020BDN00005

PATIENT
  Age: 42 Year
  Sex: Female
  Weight: 81 kg

DRUGS (41)
  1. ORENCIA [Suspect]
     Active Substance: ABATACEPT
  2. COENZYME Q10 [Concomitant]
     Active Substance: UBIDECARENONE
  3. PANTOPRAZOLE [Concomitant]
     Active Substance: PANTOPRAZOLE
  4. PREDNISONE. [Concomitant]
     Active Substance: PREDNISONE
  5. SULFAMETHOXAZOLE AND TRIMETHOPRIM [Concomitant]
     Active Substance: SULFAMETHOXAZOLE\TRIMETHOPRIM
  6. OXYCODONE TEREPHTHALATE [Suspect]
     Active Substance: OXYCODONE TEREPHTHALATE
  7. CHLORHEXIDINE GLUCONATE ORAL RINSE [Suspect]
     Active Substance: CHLORHEXIDINE GLUCONATE
  8. ENBREL [Suspect]
     Active Substance: ETANERCEPT
     Indication: RHEUMATOID ARTHRITIS
     Route: 058
  9. METHOTREXATE. [Suspect]
     Active Substance: METHOTREXATE
  10. ALFACALCIDOL [Concomitant]
     Active Substance: ALFACALCIDOL
  11. CHOLECALCIFEROL [Concomitant]
     Active Substance: CHOLECALCIFEROL
  12. HYDROXYCHLOROQUINE [Concomitant]
     Active Substance: HYDROXYCHLOROQUINE
  13. HYDROXYCHLOROQUINE SULFATE TABLETS, USP [Concomitant]
     Active Substance: HYDROXYCHLOROQUINE SULFATE
  14. IBUPROFEN. [Concomitant]
     Active Substance: IBUPROFEN
  15. REACTINE [Concomitant]
  16. CIMZIA [Suspect]
     Active Substance: CERTOLIZUMAB PEGOL
     Indication: RHEUMATOID ARTHRITIS
     Dosage: 200 MG, 2 EVERY 1 MONTH
     Route: 058
  17. FISH OIL [Concomitant]
     Active Substance: FISH OIL
  18. TEA [Concomitant]
     Active Substance: TEA LEAF
  19. NUTRASEA + D [Concomitant]
  20. PLAQUENIL [Concomitant]
     Active Substance: HYDROXYCHLOROQUINE SULFATE
  21. VITAMIN C [Concomitant]
     Active Substance: ASCORBIC ACID
  22. CIMZIA [Suspect]
     Active Substance: CERTOLIZUMAB PEGOL
     Dosage: 400 MG
     Route: 058
  23. TYLENOL [Concomitant]
     Active Substance: ACETAMINOPHEN
  24. VENTOLIN [Concomitant]
     Active Substance: ALBUTEROL SULFATE
  25. ZOPICLONE [Concomitant]
     Active Substance: ZOPICLONE
  26. ACTEMRA [Suspect]
     Active Substance: TOCILIZUMAB
  27. ARAVA [Suspect]
     Active Substance: LEFLUNOMIDE
  28. CIMZIA [Suspect]
     Active Substance: CERTOLIZUMAB PEGOL
     Dosage: 400 MG, 2 EVERY 1 MONTH
     Route: 058
  29. CETIRIZINE DIHYDROCHLORIDE [Concomitant]
     Active Substance: CETIRIZINE HYDROCHLORIDE
  30. VITAMIN D [Concomitant]
     Active Substance: VITAMIN D NOS
  31. CHLORHEXIDINE [Suspect]
     Active Substance: CHLORHEXIDINE
  32. LEFLUNOMIDE. [Suspect]
     Active Substance: LEFLUNOMIDE
  33. OXYCODONE [Suspect]
     Active Substance: OXYCODONE
  34. SIMPONI [Suspect]
     Active Substance: GOLIMUMAB
     Route: 058
  35. SULFAMETHOXAZOLE AND TRIMETHOPRIM [Suspect]
     Active Substance: SULFAMETHOXAZOLE\TRIMETHOPRIM
  36. CETIRIZINE [Concomitant]
     Active Substance: CETIRIZINE HYDROCHLORIDE
  37. DESOGESTREL/ETHINYL ESTRADIOL [Concomitant]
     Active Substance: DESOGESTREL\ETHINYL ESTRADIOL
  38. ERGOCALCIFEROL. [Concomitant]
     Active Substance: ERGOCALCIFEROL
  39. PANTOLAC [Concomitant]
  40. ASCORBIC ACID (VITAMIN C) [Concomitant]
     Active Substance: ASCORBIC ACID
  41. ACETAMINOPHEN. [Suspect]
     Active Substance: ACETAMINOPHEN

REACTIONS (22)
  - Headache [Recovered/Resolved]
  - Night sweats [Recovered/Resolved]
  - Respiratory disorder [Recovered/Resolved]
  - Back pain [Recovered/Resolved]
  - Ear pain [Recovered/Resolved]
  - Joint swelling [Recovered/Resolved]
  - Peripheral swelling [Recovered/Resolved]
  - Pruritus [Recovered/Resolved]
  - Rash [Recovered/Resolved]
  - Sinusitis [Recovered/Resolved]
  - Asthenia [Recovered/Resolved]
  - Diarrhoea [Recovered/Resolved]
  - Urticaria [Recovered/Resolved]
  - Body temperature increased [Recovered/Resolved]
  - Insomnia [Recovered/Resolved]
  - Off label use [Recovered/Resolved]
  - Abdominal pain upper [Recovered/Resolved]
  - Lower respiratory tract infection [Recovered/Resolved]
  - Muscle spasticity [Recovered/Resolved]
  - Pain [Recovered/Resolved]
  - Vomiting [Recovered/Resolved]
  - Contraindicated product administered [Recovered/Resolved]
